FAERS Safety Report 12429557 (Version 2)
Quarter: 2017Q2

REPORT INFORMATION
  Report Type: Spontaneous
  Country: US (occurrence: US)
  Receive Date: 20160602
  Receipt Date: 20170523
  Transmission Date: 20170830
  Serious: No
  Sender: FDA-Public Use
  Company Number: US-ACORDA-ACO_112816_2015

PATIENT
  Age: 71 Year
  Sex: Female
  Weight: 71.66 kg

DRUGS (2)
  1. QUTENZA [Suspect]
     Active Substance: CAPSAICIN
     Indication: HERPES ZOSTER
  2. QUTENZA [Suspect]
     Active Substance: CAPSAICIN
     Indication: POST HERPETIC NEURALGIA
     Dosage: 4 OR 5 PATCHES
     Route: 062
     Dates: start: 20150323, end: 20150323

REACTIONS (16)
  - Neuropathy peripheral [Not Recovered/Not Resolved]
  - Emotional distress [Unknown]
  - Monoplegia [Not Recovered/Not Resolved]
  - Joint range of motion decreased [Recovered/Resolved]
  - Application site pain [Recovered/Resolved]
  - Musculoskeletal stiffness [Unknown]
  - Paraesthesia [Not Recovered/Not Resolved]
  - Musculoskeletal pain [Not Recovered/Not Resolved]
  - Peripheral swelling [Recovered/Resolved]
  - Loss of personal independence in daily activities [Recovering/Resolving]
  - Hypoaesthesia [Not Recovered/Not Resolved]
  - Rash [Recovered/Resolved]
  - Muscular weakness [Not Recovered/Not Resolved]
  - Formication [Not Recovered/Not Resolved]
  - Insomnia [Not Recovered/Not Resolved]
  - Rash pruritic [Not Recovered/Not Resolved]

NARRATIVE: CASE EVENT DATE: 20150323
